FAERS Safety Report 4526862-5 (Version None)
Quarter: 2004Q4

REPORT INFORMATION
  Report Type: 
  Country: None (occurrence: None)
  Receive Date: 20041213
  Receipt Date: 20041203
  Transmission Date: 20050328
  Serious: Yes (Hospitalization, Other)
  Sender: FDA-Public Use
  Company Number: 2004-05-0364

PATIENT
  Age: 44 Year
  Sex: Female

DRUGS (2)
  1. CLARINEX [Suspect]
     Indication: HYPERSENSITIVITY
     Dosage: 1 TAB
     Dates: start: 20040428, end: 20040428
  2. REACTINE (CETIRIZINE HCL) [Concomitant]

REACTIONS (4)
  - DYSPNOEA [None]
  - FEAR [None]
  - HEART RATE INCREASED [None]
  - THROAT TIGHTNESS [None]
